FAERS Safety Report 14141708 (Version 1)
Quarter: 2017Q4

REPORT INFORMATION
  Report Type: Spontaneous
  Country: JP (occurrence: JP)
  Receive Date: 20171030
  Receipt Date: 20171030
  Transmission Date: 20180321
  Serious: Yes (Other)
  Sender: FDA-Public Use
  Company Number: JP-GLAXOSMITHKLINE-JP2017JPN012423

PATIENT
  Sex: Male

DRUGS (20)
  1. QUINIDINE SULFATE HYDRATE [Suspect]
     Active Substance: QUINIDINE SULFATE
     Dosage: 60 MG/KG, 1D
     Route: 048
  2. LAMICTAL [Suspect]
     Active Substance: LAMOTRIGINE
     Indication: INFANTILE SPASMS
     Dosage: UNK
     Route: 048
  3. LAMICTAL [Suspect]
     Active Substance: LAMOTRIGINE
     Dosage: 3 MG/KG, 1D
     Route: 048
  4. QUINIDINE SULFATE HYDRATE [Suspect]
     Active Substance: QUINIDINE SULFATE
     Dosage: 50 MG/KG, 1D
     Route: 048
  5. VALPROATE SODIUM. [Concomitant]
     Active Substance: VALPROATE SODIUM
     Dosage: 300 MG, 1D
  6. SEVOFLURANE. [Concomitant]
     Active Substance: SEVOFLURANE
     Dosage: UNK
  7. ATROPINE. [Concomitant]
     Active Substance: ATROPINE
     Dosage: 0.15 MG, UNK
  8. REMIFENTANIL HYDROCHLORIDE. [Suspect]
     Active Substance: REMIFENTANIL HYDROCHLORIDE
     Dosage: 0.25 UNK, UNK
     Route: 042
  9. ZONISAMIDE. [Concomitant]
     Active Substance: ZONISAMIDE
     Indication: INFANTILE SPASMS
     Dosage: UNK
  10. ROCURONIUM BROMIDE. [Concomitant]
     Active Substance: ROCURONIUM BROMIDE
     Dosage: 20 MG, 1D
  11. QUINIDINE SULFATE HYDRATE [Suspect]
     Active Substance: QUINIDINE SULFATE
     Indication: INFANTILE SPASMS
     Dosage: 2 MG/KG, 1D
     Route: 048
  12. QUINIDINE SULFATE HYDRATE [Suspect]
     Active Substance: QUINIDINE SULFATE
     Dosage: UNK
     Route: 048
  13. TOPIRAMATE. [Concomitant]
     Active Substance: TOPIRAMATE
     Indication: INFANTILE SPASMS
     Dosage: UNK
  14. NITROUS OXIDE. [Concomitant]
     Active Substance: NITROUS OXIDE
     Dosage: UNK
  15. PHENYLEPHRINE HYDROCHLORIDE. [Concomitant]
     Active Substance: PHENYLEPHRINE HYDROCHLORIDE
     Dosage: UNK
  16. ACETAMINOPHEN. [Concomitant]
     Active Substance: ACETAMINOPHEN
     Dosage: 180 MG, 1D
  17. FENTANYL. [Concomitant]
     Active Substance: FENTANYL
     Indication: SEDATIVE THERAPY
     Dosage: 30 ?G, 1D
  18. VALPROATE SODIUM. [Concomitant]
     Active Substance: VALPROATE SODIUM
     Indication: INFANTILE SPASMS
     Dosage: UNK
  19. NITRAZEPAM [Concomitant]
     Active Substance: NITRAZEPAM
     Indication: INFANTILE SPASMS
     Dosage: UNK
  20. VALPROATE SODIUM. [Concomitant]
     Active Substance: VALPROATE SODIUM
     Dosage: 40 MG/KG, 1D

REACTIONS (7)
  - Diarrhoea [Recovered/Resolved]
  - Blood pressure decreased [Recovering/Resolving]
  - Bradycardia [Recovering/Resolving]
  - Dysarthria [Recovering/Resolving]
  - Nodal rhythm [Recovering/Resolving]
  - Infantile spasms [Recovering/Resolving]
  - Electrocardiogram QT shortened [Recovering/Resolving]
